FAERS Safety Report 9432098 (Version 1)
Quarter: 2013Q3

REPORT INFORMATION
  Report Type: Spontaneous
  Country: US (occurrence: US)
  Receive Date: 20130731
  Receipt Date: 20130731
  Transmission Date: 20140515
  Serious: No
  Sender: FDA-Public Use
  Company Number: US-PFIZER INC-2013221390

PATIENT
  Age: 55 Year
  Sex: Female

DRUGS (9)
  1. EFFEXOR [Suspect]
     Dosage: UNK
  2. ERYTHROMYCIN [Suspect]
     Dosage: UNK
  3. VICODIN [Suspect]
     Dosage: UNK
  4. BIAXIN [Suspect]
     Dosage: UNK
  5. LEXAPRO [Suspect]
     Dosage: UNK
  6. PROZAC [Suspect]
     Dosage: UNK
  7. SYNTHROID [Suspect]
     Dosage: UNK
  8. PAXIL [Suspect]
     Dosage: UNK
  9. BACTRIM [Suspect]
     Dosage: UNK

REACTIONS (1)
  - Drug hypersensitivity [Unknown]
